FAERS Safety Report 14234751 (Version 1)
Quarter: 2017Q4

REPORT INFORMATION
  Report Type: Spontaneous
  Country: IT (occurrence: IT)
  Receive Date: 20171129
  Receipt Date: 20171129
  Transmission Date: 20180321
  Serious: Yes (Other)
  Sender: FDA-Public Use
  Company Number: IT-SUN PHARMACEUTICAL INDUSTRIES LTD-2017R1-146445

PATIENT
  Age: 40 Year
  Sex: Female

DRUGS (1)
  1. FLURBIPROFEN. [Suspect]
     Active Substance: FLURBIPROFEN
     Indication: OROPHARYNGEAL PAIN
     Dosage: 8.75 MG, DAILY
     Route: 048

REACTIONS (1)
  - Acute generalised exanthematous pustulosis [Recovered/Resolved]
